FAERS Safety Report 8542309-6 (Version None)
Quarter: 2012Q3

REPORT INFORMATION
  Report Type: 
  Country: None (occurrence: None)
  Receive Date: 20120726
  Receipt Date: 20120326
  Transmission Date: 20120928
  Serious: No
  Sender: FDA-Public Use
  Company Number: US-ASTRAZENECA-2011SE25623

PATIENT
  Age: 64 Year
  Sex: Female

DRUGS (2)
  1. SEROQUEL [Suspect]
     Indication: SLEEP DISORDER THERAPY
     Route: 048
  2. SEROQUEL [Suspect]
     Indication: BIPOLAR DISORDER
     Route: 048

REACTIONS (4)
  - VISUAL IMPAIRMENT [None]
  - INSOMNIA [None]
  - UPPER RESPIRATORY TRACT INFECTION [None]
  - DRUG DOSE OMISSION [None]
